FAERS Safety Report 5265825-1 (Version None)
Quarter: 2007Q1

REPORT INFORMATION
  Report Type: 
  Country: None (occurrence: None)
  Receive Date: 20070315
  Receipt Date: 20070307
  Transmission Date: 20070707
  Serious: Yes (Other)
  Sender: FDA-Public Use
  Company Number: US-SP-2007-00702

PATIENT

DRUGS (1)
  1. TUBERSOL [Suspect]
     Indication: TUBERCULIN TEST
     Route: 065
     Dates: start: 20070305

REACTIONS (2)
  - DYSPNOEA [None]
  - STRIDOR [None]
